FAERS Safety Report 6035331-5 (Version None)
Quarter: 2009Q1

REPORT INFORMATION
  Report Type: 
  Country: None (occurrence: None)
  Receive Date: 20090113
  Receipt Date: 20090107
  Transmission Date: 20090719
  Serious: Yes (Hospitalization)
  Sender: FDA-Public Use
  Company Number: GB-RANBAXY-2008RR-18759

PATIENT
  Age: 34 Year
  Sex: Male

DRUGS (15)
  1. AZITHROMYCIN [Suspect]
  2. CIPROFLOXACIN HCL [Suspect]
     Route: 048
  3. OMEPRAZOLE [Suspect]
     Indication: GASTROOESOPHAGEAL REFLUX DISEASE
     Route: 065
  4. CLARITHROMYCIN [Suspect]
     Indication: MYCOBACTERIUM ABSCESSUS INFECTION
  5. CLARITHROMYCIN [Suspect]
     Indication: PSEUDOMONAS INFECTION
  6. COLISTIN SULFATE [Suspect]
     Indication: PSEUDOMONAS INFECTION
     Dosage: UNK
     Route: 042
  7. INTERFERON GAMMA [Suspect]
     Indication: PSEUDOMONAS INFECTION
     Route: 058
  8. INTERFERON GAMMA [Suspect]
     Indication: MYCOBACTERIUM ABSCESSUS INFECTION
  9. MEROPENEM [Suspect]
     Indication: DRUG USE FOR UNKNOWN INDICATION
     Dosage: UNK
     Route: 042
  10. MINOCYCLINE HCL [Suspect]
     Indication: MYCOBACTERIUM ABSCESSUS INFECTION
  11. MINOCYCLINE HCL [Suspect]
     Indication: PSEUDOMONAS INFECTION
  12. TOBRAMYCIN SULFATE INJECTION [Suspect]
     Indication: PSEUDOMONAS INFECTION
     Route: 055
  13. TOBRAMYCIN SULFATE INJECTION [Suspect]
     Indication: MYCOBACTERIUM ABSCESSUS INFECTION
  14. TOBI [Concomitant]
     Indication: PSEUDOMONAS INFECTION
     Route: 055
  15. TOBI [Concomitant]
     Indication: MYCOBACTERIUM ABSCESSUS INFECTION

REACTIONS (10)
  - ABDOMINAL PAIN [None]
  - C-REACTIVE PROTEIN INCREASED [None]
  - CLOSTRIDIUM DIFFICILE COLITIS [None]
  - DEHYDRATION [None]
  - DIARRHOEA [None]
  - HYPOTENSION [None]
  - NAUSEA [None]
  - PSEUDOMEMBRANOUS COLITIS [None]
  - PYREXIA [None]
  - TACHYCARDIA [None]
